FAERS Safety Report 8057549-2 (Version None)
Quarter: 2012Q1

REPORT INFORMATION
  Report Type: 
  Country: None (occurrence: None)
  Receive Date: 20120120
  Receipt Date: 20120109
  Transmission Date: 20120608
  Serious: Yes (Other)
  Sender: FDA-Public Use
  Company Number: US-BAXTER-2011BH039077

PATIENT
  Age: 80 Year
  Sex: Female
  Weight: 79 kg

DRUGS (1)
  1. DIANEAL [Suspect]
     Indication: RENAL FAILURE CHRONIC
     Route: 033

REACTIONS (3)
  - EPISTAXIS [None]
  - DYSGEUSIA [None]
  - JOINT DISLOCATION [None]
